FAERS Safety Report 6195030-6 (Version None)
Quarter: 2009Q2

REPORT INFORMATION
  Report Type: 
  Country: None (occurrence: None)
  Receive Date: 20090519
  Receipt Date: 20090512
  Transmission Date: 20091009
  Serious: Yes (Hospitalization)
  Sender: FDA-Public Use
  Company Number: B0574051A

PATIENT
  Age: 49 Year
  Sex: Male

DRUGS (19)
  1. KIVEXA [Suspect]
     Indication: HIV INFECTION
     Dates: start: 20090303
  2. TRUVADA [Suspect]
     Indication: HIV INFECTION
     Route: 048
     Dates: start: 20081223, end: 20090104
  3. EMTRIVA [Suspect]
     Indication: HIV INFECTION
     Route: 048
     Dates: start: 20090104
  4. KALETRA [Suspect]
     Indication: HIV INFECTION
     Route: 048
     Dates: start: 20081223, end: 20090303
  5. FUZEON [Suspect]
     Dosage: 90MG TWICE PER DAY
     Route: 058
     Dates: start: 20081223
  6. PREDNISONE [Suspect]
     Dosage: 60MG PER DAY
     Dates: start: 20050320
  7. ZECLAR [Concomitant]
     Indication: MYCOBACTERIUM AVIUM COMPLEX INFECTION
  8. FOLINORAL [Concomitant]
     Indication: SUPPLEMENTATION THERAPY
     Dosage: 25MG PER DAY
  9. TRIFLUCAN [Concomitant]
     Indication: FUNGAL INFECTION
     Dates: start: 20090102
  10. ANSATIPINE [Concomitant]
     Indication: MYCOBACTERIUM AVIUM COMPLEX INFECTION
  11. MYAMBUTOL [Concomitant]
     Indication: MYCOBACTERIUM AVIUM COMPLEX INFECTION
     Dosage: 800MG PER DAY
  12. BACTRIM [Concomitant]
     Indication: ANTIFUNGAL PROPHYLAXIS
     Dates: start: 20081121
  13. VALGANCICLOVIR HCL [Concomitant]
     Indication: CYTOMEGALOVIRUS TEST
     Dates: start: 20090213
  14. OFLOXACIN [Concomitant]
     Dates: start: 20090214
  15. RIMIFON [Concomitant]
     Indication: MYCOBACTERIUM AVIUM COMPLEX INFECTION
  16. NICARDIPINE HCL [Concomitant]
     Dates: start: 20090124
  17. NOVONORM [Concomitant]
  18. ZECLAR [Concomitant]
     Dates: start: 20081121
  19. FOLINORAL [Concomitant]
     Dosage: 25MG PER DAY
     Dates: start: 20081121

REACTIONS (13)
  - ABSCESS [None]
  - ALANINE AMINOTRANSFERASE INCREASED [None]
  - ANAEMIA [None]
  - ASPARTATE AMINOTRANSFERASE INCREASED [None]
  - CHOLESTASIS [None]
  - CONVULSION [None]
  - DISSEMINATED CYTOMEGALOVIRAL INFECTION [None]
  - FALL [None]
  - IMMUNE RECONSTITUTION SYNDROME [None]
  - LARGE INTESTINE PERFORATION [None]
  - PYREXIA [None]
  - RENAL FAILURE [None]
  - SUBDURAL HAEMATOMA [None]
